FAERS Safety Report 6362019-3 (Version None)
Quarter: 2009Q3

REPORT INFORMATION
  Report Type: 
  Country: None (occurrence: None)
  Receive Date: 20090918
  Receipt Date: 20090911
  Transmission Date: 20100115
  Serious: Yes (Other)
  Sender: FDA-Public Use
  Company Number: BR-ABBOTT-09P-020-0596753-00

PATIENT
  Sex: Male

DRUGS (5)
  1. DEPAKENE [Suspect]
     Indication: CONVULSION
     Route: 048
     Dates: start: 19920101, end: 20000101
  2. DEPAKENE [Suspect]
     Indication: PROPHYLAXIS
     Dates: start: 20000101
  3. DEPAKENE [Suspect]
     Route: 048
  4. TEGRETOL [Concomitant]
     Indication: CONVULSION
     Route: 048
  5. TEGRETOL [Concomitant]
     Indication: PROPHYLAXIS

REACTIONS (4)
  - DRUG INEFFECTIVE [None]
  - FACIAL PARESIS [None]
  - MEMORY IMPAIRMENT [None]
  - PETIT MAL EPILEPSY [None]
